FAERS Safety Report 4926037-1 (Version None)
Quarter: 2006Q1

REPORT INFORMATION
  Report Type: 
  Country: None (occurrence: None)
  Receive Date: 20060228
  Receipt Date: 20050802
  Transmission Date: 20060701
  Serious: No
  Sender: FDA-Public Use
  Company Number: US-GLAXOSMITHKLINE-A0568638A

PATIENT
  Age: 63 Year
  Sex: Female

DRUGS (20)
  1. LAMICTAL [Suspect]
     Dosage: 50MG TWICE PER DAY
     Route: 048
     Dates: start: 20050101
  2. THEOPHYLLINE [Concomitant]
  3. ZOLOFT [Concomitant]
  4. TRICOR [Concomitant]
  5. FLEXERIL [Concomitant]
  6. FOLIC ACID [Concomitant]
  7. DARVOCET-N 100 [Concomitant]
  8. TRAMADOL HCL [Concomitant]
  9. PLAQUENIL [Concomitant]
  10. PRILOSEC [Concomitant]
  11. LIPITOR [Concomitant]
  12. EVISTA [Concomitant]
  13. SYNTHROID [Concomitant]
  14. ASPIRIN [Concomitant]
  15. SEREVENT [Concomitant]
  16. HYDROCHLOROTHIAZIDE [Concomitant]
  17. ALLEGRA [Concomitant]
  18. TYLENOL (CAPLET) [Concomitant]
  19. ASCORBIC ACID [Concomitant]
  20. CENTRUM SILVER MV [Concomitant]

REACTIONS (3)
  - ALOPECIA [None]
  - CANDIDIASIS [None]
  - MOUTH ULCERATION [None]
